FAERS Safety Report 8653118 (Version 4)
Quarter: 2012Q4

REPORT INFORMATION
  Report Type: 
  Country: JP (occurrence: JP)
  Receive Date: 20120706
  Receipt Date: 20120924
  Transmission Date: 20130627
  Serious: Yes (Hospitalization, Other)
  Sender: FDA-Public Use
  Company Number: JP-JNJFOC-20120701952

PATIENT
  Age: 8 Year
  Sex: Female

DRUGS (6)
  1. SIMPONI [Suspect]
     Indication: RHEUMATOID ARTHRITIS
     Route: 058
     Dates: start: 20120502, end: 201206
  2. METHOTREXATE [Suspect]
     Indication: RHEUMATOID ARTHRITIS
     Route: 065
     Dates: start: 20120502
  3. PREDONINE [Suspect]
     Indication: RHEUMATOID ARTHRITIS
     Route: 065
     Dates: start: 20120502
  4. UNSPECIFIED INGREDIENT [Suspect]
     Indication: PRODUCT USED FOR UNKNOWN INDICATION
     Route: 048
     Dates: start: 20120614
  5. ALL OTHER THERAPEUTIC AGENTS [Concomitant]
     Route: 048
     Dates: start: 201206
  6. UNASYN-S [Concomitant]
     Indication: HEPATIC FUNCTION ABNORMAL
     Route: 041
     Dates: start: 20120628, end: 20120704

REACTIONS (11)
  - Pneumonia [Unknown]
  - Hepatic function abnormal [Recovered/Resolved]
  - Arthralgia [Unknown]
  - Malaise [Unknown]
  - Blood urea increased [None]
  - Aspartate aminotransferase increased [None]
  - Alanine aminotransferase increased [None]
  - Blood alkaline phosphatase increased [None]
  - Blood lactate dehydrogenase increased [None]
  - Red blood cell count decreased [None]
  - Gamma-glutamyltransferase increased [None]
